FAERS Safety Report 25665227 (Version 1)
Quarter: 2025Q3

REPORT INFORMATION
  Report Type: Spontaneous
  Country: EU (occurrence: EU)
  Receive Date: 20250811
  Receipt Date: 20250811
  Transmission Date: 20251020
  Serious: Yes (Hospitalization)
  Sender: CHEPLAPHARM
  Company Number: None

PATIENT
  Age: 68 Year
  Sex: Male

DRUGS (14)
  1. QUETIAPINE [Suspect]
     Active Substance: QUETIAPINE
     Indication: Bipolar II disorder
     Dosage: DAILY DOSE: 800 MILLIGRAM
     Route: 048
  2. QUETIAPINE [Suspect]
     Active Substance: QUETIAPINE
     Indication: Bipolar II disorder
     Route: 048
  3. CLOZAPINE [Suspect]
     Active Substance: CLOZAPINE
     Indication: Bipolar II disorder
     Dosage: DAILY DOSE: 200 MILLIGRAM
     Route: 048
  4. CLOZAPINE [Suspect]
     Active Substance: CLOZAPINE
     Indication: Bipolar II disorder
     Dosage: DAILY DOSE: 150 MILLIGRAM
     Route: 048
  5. VALPROATE SODIUM [Suspect]
     Active Substance: VALPROATE SODIUM
     Indication: Bipolar II disorder
     Dosage: SUSTAINED-RELEASE GRANULES IN A SACHET?DAILY DOSE: 1000 MILLIGRAM
     Route: 048
  6. VALPROATE SODIUM [Suspect]
     Active Substance: VALPROATE SODIUM
     Indication: Bipolar II disorder
     Dosage: SUSTAINED-RELEASE GRANULES IN A SACHET; 500MG MORNING AND 750MG EVENING?DAILY DOSE: 1250 MILLIGRAM
     Route: 048
  7. LIPTRUZET [Concomitant]
     Active Substance: ATORVASTATIN CALCIUM\EZETIMIBE
     Dosage: IN THE EVENING?DAILY DOSE: 1 DOSAGE FORM
  8. METFORMIN HYDROCHLORIDE [Concomitant]
     Active Substance: METFORMIN HYDROCHLORIDE
     Dosage: MORNING AND EVENING?DAILY DOSE: 1400 MILLIGRAM
  9. PROPRANOLOL [Concomitant]
     Active Substance: PROPRANOLOL HYDROCHLORIDE
     Dosage: MORNING AND EVENING?DAILY DOSE: 80 MILLIGRAM
  10. ESOMEPRAZOLE [Concomitant]
     Active Substance: ESOMEPRAZOLE
     Dosage: IN THE EVENING?DAILY DOSE: 10 MILLIGRAM
  11. MIDODRINE HYDROCHLORIDE [Concomitant]
     Active Substance: MIDODRINE HYDROCHLORIDE
     Dosage: 2.5 MG: 2 TABLETS MORNING AND EVENING?DAILY DOSE: 10 MILLIGRAM
  12. Lauromacrogol [Concomitant]
  13. MELATONIN [Concomitant]
     Active Substance: MELATONIN
     Dosage: IN THE EVENING?DAILY DOSE: 2 MILLIGRAM
  14. LOXAPINE [Concomitant]
     Active Substance: LOXAPINE

REACTIONS (3)
  - Extrapyramidal disorder [Recovered/Resolved]
  - Pneumonia aspiration [Recovered/Resolved]
  - Dysphagia [Unknown]

NARRATIVE: CASE EVENT DATE: 20250701
